FAERS Safety Report 8773871 (Version 1)
Quarter: 2012Q4

REPORT INFORMATION
  Report Type: 
  Country: US (occurrence: US)
  Receive Date: 20120907
  Receipt Date: 20120907
  Transmission Date: 20130627
  Serious: Yes (Hospitalization)
  Sender: FDA-Public Use
  Company Number: US-BRISTOL-MYERS SQUIBB COMPANY-16908816

PATIENT
  Age: 58 Year
  Sex: Female

DRUGS (6)
  1. TRIAMCINOLONE ACE INJ [Suspect]
     Indication: SPINAL COLUMN STENOSIS
     Dosage: Injection.
     Route: 008
  2. RITONAVIR [Interacting]
     Indication: HIV INFECTION
  3. HYDROCHLOROTHIAZIDE [Concomitant]
  4. OMEPRAZOLE [Concomitant]
  5. PRAVASTATIN SODIUM [Concomitant]
  6. HYDROCODONE + ACETAMINOPHEN [Concomitant]
     Indication: BACK PAIN

REACTIONS (10)
  - Cushing^s syndrome [Unknown]
  - Secondary adrenocortical insufficiency [Unknown]
  - Drug interaction [Unknown]
  - Tremor [None]
  - Insomnia [None]
  - Anxiety [None]
  - Blood pressure systolic increased [None]
  - Body temperature increased [None]
  - White blood cell count increased [None]
  - Blood glucose increased [None]
